FAERS Safety Report 5341950-1 (Version None)
Quarter: 2007Q2

REPORT INFORMATION
  Report Type: 
  Country: None (occurrence: None)
  Receive Date: 20070601
  Receipt Date: 20070530
  Transmission Date: 20071010
  Serious: Yes (Life-Threatening)
  Sender: FDA-Public Use
  Company Number: PHBS2007JP02695

PATIENT
  Age: 84 Year
  Sex: Female

DRUGS (6)
  1. NORVASC [Concomitant]
     Dosage: 5 MG/DAY
     Route: 048
  2. ALFACALCIDOL [Concomitant]
     Dosage: 1.0 UG+DAY
     Route: 048
  3. SUCRALFATE [Concomitant]
     Route: 065
  4. DEPAS [Concomitant]
     Dosage: 0.5 MG/DAY
     Route: 048
  5. TEGRETOL [Suspect]
     Indication: TENSION HEADACHE
     Dosage: 200 MG, TID
     Route: 048
     Dates: start: 20070105, end: 20070125
  6. TEGRETOL [Suspect]
     Dosage: 200 MG/DAY
     Route: 048

REACTIONS (3)
  - DIZZINESS [None]
  - DRUG LEVEL INCREASED [None]
  - SINUS ARREST [None]
